FAERS Safety Report 6894728-1 (Version None)
Quarter: 2010Q3

REPORT INFORMATION
  Report Type: 
  Country: None (occurrence: None)
  Receive Date: 20100802
  Receipt Date: 20100720
  Transmission Date: 20110219
  Serious: Yes (Hospitalization)
  Sender: FDA-Public Use
  Company Number: US-ELI_LILLY_AND_COMPANY-US200912005332

PATIENT
  Sex: Female

DRUGS (8)
  1. FORTEO [Suspect]
     Indication: OSTEOPOROSIS
     Dosage: 20 UG, DAILY (1/D)
     Dates: start: 20090925, end: 20091201
  2. FORTEO [Suspect]
     Dosage: 20 UG, DAILY (1/D)
     Dates: start: 20091201
  3. METHOTREXATE [Concomitant]
     Dosage: UNK, WEEKLY (1/W)
  4. PREDNISONE/00044701/ [Concomitant]
     Dosage: 5 MG, DAILY (1/D)
  5. CELEBREX [Concomitant]
     Dosage: UNK, DAILY (1/D)
  6. VITAMIN D [Concomitant]
     Dosage: UNK, WEEKLY (1/W)
  7. TYLENOL W/ CODEINE NO. 4 [Concomitant]
     Indication: PAIN
  8. MISOPROSTOL [Concomitant]

REACTIONS (6)
  - BACK PAIN [None]
  - CARDIAC DISORDER [None]
  - DYSPNOEA [None]
  - LUNG DISORDER [None]
  - PULMONARY HYPERTENSION [None]
  - WEIGHT INCREASED [None]
